FAERS Safety Report 8450700-1 (Version None)
Quarter: 2012Q2

REPORT INFORMATION
  Report Type: 
  Country: None (occurrence: None)
  Receive Date: 20120615
  Receipt Date: 20120615
  Transmission Date: 20120825
  Serious: Yes (Other)
  Sender: FDA-Public Use
  Company Number: None

PATIENT
  Age: 29 Year
  Sex: Female
  Weight: 72.5755 kg

DRUGS (1)
  1. MIRENA [Suspect]
     Indication: INTRA-UTERINE CONTRACEPTIVE DEVICE
     Dosage: IUD IMPLANT
     Dates: start: 20110515, end: 20111015

REACTIONS (12)
  - HORMONE LEVEL ABNORMAL [None]
  - DISTURBANCE IN ATTENTION [None]
  - NAUSEA [None]
  - PALPITATIONS [None]
  - HEADACHE [None]
  - PAIN IN EXTREMITY [None]
  - EYE IRRITATION [None]
  - ALOPECIA [None]
  - DIARRHOEA [None]
  - PANIC ATTACK [None]
  - HYPOAESTHESIA [None]
  - BLOOD TESTOSTERONE INCREASED [None]
